FAERS Safety Report 6649834-3 (Version None)
Quarter: 2010Q1

REPORT INFORMATION
  Report Type: 
  Country: None (occurrence: None)
  Receive Date: 20100325
  Receipt Date: 20100323
  Transmission Date: 20100710
  Serious: Yes (Other)
  Sender: FDA-Public Use
  Company Number: US-ASTRAZENECA-2007UW03017

PATIENT
  Age: 622 Month
  Sex: Male

DRUGS (15)
  1. SEROQUEL [Suspect]
     Indication: SCHIZOPHRENIA
     Route: 048
     Dates: start: 20030201, end: 20060101
  2. SEROQUEL [Suspect]
     Indication: SLEEP DISORDER
     Route: 048
     Dates: start: 20030201, end: 20060101
  3. SEROQUEL [Suspect]
     Dosage: 100MG TO 400MG
     Route: 048
     Dates: start: 20030201, end: 20070127
  4. SEROQUEL [Suspect]
     Dosage: 100MG TO 400MG
     Route: 048
     Dates: start: 20030201, end: 20070127
  5. ZYPREXA [Concomitant]
     Dates: start: 19990101
  6. RISPERDAL [Concomitant]
     Indication: SCHIZOPHRENIA
     Dosage: 1 MG AND 2 MG
     Dates: start: 20000426, end: 20000822
  7. RISPERDAL [Concomitant]
     Dates: start: 20010101
  8. ABILIFY [Concomitant]
     Dosage: 20MG, 30MG
     Dates: start: 20070101
  9. ABILIFY [Concomitant]
     Dosage: 15 MG
     Dates: start: 20060101
  10. HALDOL [Concomitant]
     Dates: start: 19780101
  11. NAVANE [Concomitant]
     Dates: start: 19840101
  12. THORAZINE [Concomitant]
     Dates: start: 19760101
  13. TRILAFON [Concomitant]
     Dates: start: 19870101
  14. TRIAVIL [Concomitant]
     Dates: start: 19870101
  15. TRAZODONE HCL [Concomitant]
     Dates: start: 20010101

REACTIONS (5)
  - LEG AMPUTATION [None]
  - LIVER INJURY [None]
  - RENAL DISORDER [None]
  - TYPE 2 DIABETES MELLITUS [None]
  - VISUAL IMPAIRMENT [None]
